FAERS Safety Report 8784673 (Version 2)
Quarter: 2012Q4

REPORT INFORMATION
  Report Type: Spontaneous
  Country: AU (occurrence: None)
  Receive Date: 20120827
  Receipt Date: 20120919
  Transmission Date: 20130627
  Serious: Yes (Hospitalization)
  Sender: FDA-Public Use
  Company Number: ACO_31466_2012

PATIENT
  Age: 57 Year
  Sex: Female

DRUGS (8)
  1. FAMPRIDINE-SR (FAMPRIDINE) TABLET [Suspect]
     Indication: MULTIPLE SCLEROSIS
     Route: 048
     Dates: start: 20120405, end: 20120709
  2. FAMPRIDINE-SR (FAMPRIDINE) TABLET [Suspect]
     Indication: MULTIPLE SCLEROSIS
     Route: 048
     Dates: start: 20120719
  3. AMANTADINE (AMANTADINE) [Concomitant]
  4. PANADOL /00020001/ (PARACETAMOL) [Concomitant]
  5. TRESOS B (VITAMIN NOS) [Concomitant]
  6. OSTELIN /00107901/ (ERGOCALCIFEROL) [Concomitant]
  7. CYMBALTA (DULOXETINE HYDROCHLORIDE) [Concomitant]
  8. VOLTAREN /00372301/ (DICLOFENAC) [Concomitant]

REACTIONS (12)
  - Traumatic intracranial haemorrhage [None]
  - Fall [None]
  - Syncope [None]
  - Loss of consciousness [None]
  - Subarachnoid haemorrhage [None]
  - Brain contusion [None]
  - White blood cell count increased [None]
  - Neutrophil count increased [None]
  - Monocyte count increased [None]
  - Haematoma [None]
  - Periorbital contusion [None]
  - Orthostatic hypotension [None]
